FAERS Safety Report 12395453 (Version 1)
Quarter: 2016Q2

REPORT INFORMATION
  Report Type: Report from Study
  Country: US (occurrence: US)
  Receive Date: 20160523
  Receipt Date: 20160523
  Transmission Date: 20160815
  Serious: Yes (Hospitalization, Other)
  Sender: FDA-Public Use
  Company Number: US-ABBVIE-16P-163-1631875-00

PATIENT
  Sex: Male

DRUGS (1)
  1. VIEKIRA PAK [Suspect]
     Active Substance: DASABUVIR\OMBITASVIR\PARITAPREVIR\RITONAVIR
     Indication: HEPATITIS C
     Dosage: IN THE AM AND PM AS DIRECTED
     Route: 048
     Dates: start: 20160502

REACTIONS (6)
  - Chills [Unknown]
  - Malaise [Unknown]
  - Tremor [Unknown]
  - Arthralgia [Unknown]
  - Myalgia [Unknown]
  - Lethargy [Unknown]
